FAERS Safety Report 6216013-3 (Version None)
Quarter: 2009Q2

REPORT INFORMATION
  Report Type: 
  Country: None (occurrence: None)
  Receive Date: 20090605
  Receipt Date: 20090525
  Transmission Date: 20091009
  Serious: Yes (Hospitalization, Other)
  Sender: FDA-Public Use
  Company Number: PHBS2008DK02564

PATIENT
  Sex: Female
  Weight: 104 kg

DRUGS (4)
  1. LEPONEX [Suspect]
     Indication: ACCIDENTAL EXPOSURE
     Dosage: 1500 MG, ONCE/SINGLE
     Route: 048
  2. EFFEXOR [Concomitant]
     Dosage: 150 MG DAILY
     Dates: start: 20040101
  3. SEROQUEL [Concomitant]
     Dosage: 150 MG DAILY
     Dates: start: 20040101
  4. TRUXAL [Concomitant]
     Dosage: 15 MG DAILY
     Dates: start: 20070101

REACTIONS (5)
  - DEPRESSION [None]
  - DRUG EXPOSURE DURING PREGNANCY [None]
  - NORMAL NEWBORN [None]
  - OVERDOSE [None]
  - SUICIDE ATTEMPT [None]
